FAERS Safety Report 9494191 (Version 1)
Quarter: 2013Q3

REPORT INFORMATION
  Report Type: Spontaneous
  Country: GB (occurrence: GB)
  Receive Date: 20130903
  Receipt Date: 20130903
  Transmission Date: 20140515
  Serious: Yes (Other)
  Sender: FDA-Public Use
  Company Number: GB-JNJFOC-20130813304

PATIENT
  Sex: 0

DRUGS (1)
  1. IBUPROFEN [Suspect]
     Indication: PRODUCT USED FOR UNKNOWN INDICATION
     Route: 065

REACTIONS (5)
  - Adverse drug reaction [Unknown]
  - Drug hypersensitivity [Recovered/Resolved]
  - Angioedema [Recovered/Resolved]
  - Gastrointestinal disorder [Recovered/Resolved]
  - Urticaria [Recovered/Resolved]
